FAERS Safety Report 9026850 (Version 2)
Quarter: 2013Q1

REPORT INFORMATION
  Report Type: Spontaneous
  Country: ES (occurrence: ES)
  Receive Date: 20130123
  Receipt Date: 20130222
  Transmission Date: 20140127
  Serious: Yes (Hospitalization)
  Sender: FDA-Public Use
  Company Number: ES-PFIZER INC-2013025270

PATIENT
  Age: 58 Year
  Sex: Female
  Weight: 60 kg

DRUGS (5)
  1. SUTENT [Suspect]
     Indication: RENAL CELL CARCINOMA
     Dosage: 50 MG, 1X/DAY
     Route: 048
     Dates: start: 201112, end: 20130113
  2. EUTIROX [Concomitant]
     Dosage: 100 UNK, UNK
     Route: 048
  3. MST [Concomitant]
     Dosage: 10-0-10 UNK, UNK
     Route: 048
  4. ORAMORPH [Concomitant]
     Dosage: 20 MG/DL, AS NEEDED
     Route: 048
  5. NOLOTIL /SPA/ [Concomitant]
     Dosage: 575 UNK, AS NEEDED
     Route: 048

REACTIONS (3)
  - Brain oedema [Recovered/Resolved]
  - Disease progression [Unknown]
  - Renal cell carcinoma [Unknown]
